FAERS Safety Report 17119103 (Version 1)
Quarter: 2019Q4

REPORT INFORMATION
  Report Type: Spontaneous
  Country: US (occurrence: US)
  Receive Date: 20191206
  Receipt Date: 20191206
  Transmission Date: 20200122
  Serious: No
  Sender: FDA-Public Use
  Company Number: US-UCBSA-2017034703

PATIENT
  Sex: Female

DRUGS (1)
  1. CIMZIA [Suspect]
     Active Substance: CERTOLIZUMAB PEGOL
     Indication: RHEUMATOID ARTHRITIS
     Dosage: 200 MG, EV 2 WEEKS(QOW)
     Route: 058

REACTIONS (8)
  - Depression [Unknown]
  - Adverse drug reaction [Unknown]
  - Asthenia [Unknown]
  - Joint swelling [Unknown]
  - Dysuria [Unknown]
  - Peripheral swelling [Unknown]
  - Nausea [Unknown]
  - Arthralgia [Unknown]
